FAERS Safety Report 18397971 (Version 4)
Quarter: 2020Q4

REPORT INFORMATION
  Report Type: Spontaneous
  Country: JP (occurrence: JP)
  Receive Date: 20201019
  Receipt Date: 20201119
  Transmission Date: 20210114
  Serious: No
  Sender: FDA-Public Use
  Company Number: JP-JNJFOC-20201008283

PATIENT
  Age: 7 Decade
  Sex: Female
  Weight: 40 kg

DRUGS (1)
  1. SIMPONI [Suspect]
     Active Substance: GOLIMUMAB
     Indication: RHEUMATOID ARTHRITIS
     Dosage: 50.00 MG / 0.50 ML
     Route: 058
     Dates: end: 20201001

REACTIONS (4)
  - Needle issue [Unknown]
  - Administration site bruise [Recovered/Resolved]
  - Device infusion issue [Unknown]
  - Underdose [Unknown]
